FAERS Safety Report 20600040 (Version 1)
Quarter: 2022Q1

REPORT INFORMATION
  Report Type: Spontaneous
  Country: US (occurrence: US)
  Receive Date: 20220316
  Receipt Date: 20220316
  Transmission Date: 20220424
  Serious: Yes (Disabling)
  Sender: FDA-Public Use
  Company Number: US-SA-SAC20220307002110

PATIENT
  Age: 73 Year
  Sex: Male

DRUGS (17)
  1. AUBAGIO [Suspect]
     Active Substance: TERIFLUNOMIDE
     Indication: Multiple sclerosis
     Dosage: 14 MG, QD
     Route: 048
     Dates: start: 2014
  2. XARELTO [Concomitant]
     Active Substance: RIVAROXABAN
     Dosage: UNK
  3. TOPAMAX [Concomitant]
     Active Substance: TOPIRAMATE
     Dosage: UNK
  4. FLUOXETINE HYDROCHLORIDE [Concomitant]
     Active Substance: FLUOXETINE HYDROCHLORIDE
     Dosage: UNK
  5. ACTHAR [Concomitant]
     Active Substance: CORTICOTROPIN
     Dosage: UNK
  6. CALCIUM [Concomitant]
     Active Substance: CALCIUM
     Dosage: UNK
  7. BACLOFEN [Concomitant]
     Active Substance: BACLOFEN
     Dosage: UNK
  8. VERAPAMIL [Concomitant]
     Active Substance: VERAPAMIL HYDROCHLORIDE
     Dosage: UNK
  9. LOVASTATIN [Concomitant]
     Active Substance: LOVASTATIN
     Dosage: UNK
  10. MODAFINIL [Concomitant]
     Active Substance: MODAFINIL
     Dosage: UNK
  11. DIAZEPAM [Concomitant]
     Active Substance: DIAZEPAM
     Dosage: UNK
  12. MYRBETRIQ [Concomitant]
     Active Substance: MIRABEGRON
     Dosage: UNK
  13. DULOXETINE HYDROCHLORIDE [Concomitant]
     Active Substance: DULOXETINE HYDROCHLORIDE
     Dosage: UNK
  14. VITAMIN D NOS [Concomitant]
     Active Substance: VITAMIN D NOS
     Dosage: UNK
  15. CARBAMAZEPINE [Concomitant]
     Active Substance: CARBAMAZEPINE
     Dosage: UNK
  16. QUINAPRIL [Concomitant]
     Active Substance: QUINAPRIL
     Dosage: UNK
  17. MAGNESIUM [Concomitant]
     Active Substance: MAGNESIUM
     Dosage: UNK

REACTIONS (5)
  - Wheelchair user [Unknown]
  - Muscle spasms [Unknown]
  - Fall [Unknown]
  - Pain [Unknown]
  - Depressed mood [Unknown]

NARRATIVE: CASE EVENT DATE: 20220302
